FAERS Safety Report 9979123 (Version 1)
Quarter: 2014Q1

REPORT INFORMATION
  Report Type: Report from Study
  Country: US (occurrence: US)
  Receive Date: 20140306
  Receipt Date: 20140306
  Transmission Date: 20141002
  Serious: Yes (Hospitalization)
  Sender: FDA-Public Use
  Company Number: US-ABBVIE-13P-163-1174092-00

PATIENT
  Age: 67 Year
  Sex: Male

DRUGS (6)
  1. HUMIRA [Suspect]
     Indication: CROHN^S DISEASE
     Route: 058
     Dates: start: 20131001, end: 20131125
  2. HUMIRA [Suspect]
  3. ARMOUR THYROID [Concomitant]
     Route: 048
  4. OMEPRAZOLE [Concomitant]
     Indication: GASTROOESOPHAGEAL REFLUX DISEASE
     Route: 048
  5. MEMORY PILL [Concomitant]
     Indication: PRODUCT USED FOR UNKNOWN INDICATION
     Route: 048
  6. WARFARIN [Concomitant]
     Indication: FACTOR V LEIDEN MUTATION
     Route: 048

REACTIONS (7)
  - Infection [Recovering/Resolving]
  - Erythema [Unknown]
  - Paraesthesia [Unknown]
  - Chest pain [Unknown]
  - Dyspnoea [Unknown]
  - Pneumonia [Unknown]
  - Pyrexia [Unknown]
